FAERS Safety Report 21633441 (Version 1)
Quarter: 2022Q4

REPORT INFORMATION
  Report Type: Spontaneous
  Country: DE (occurrence: DE)
  Receive Date: 20221123
  Receipt Date: 20221123
  Transmission Date: 20230112
  Serious: Yes (Hospitalization)
  Sender: FDA-Public Use
  Company Number: DE-ADRED-07733-01

PATIENT
  Age: 79 Year
  Sex: Female

DRUGS (6)
  1. MIRTAZAPINE [Suspect]
     Active Substance: MIRTAZAPINE
     Indication: Product used for unknown indication
     Dosage: 15 MG, 0-0-1-0 ((IN EVENING) (0-0-1-0))
     Route: 048
  2. MIRTAZAPINE [Suspect]
     Active Substance: MIRTAZAPINE
     Dosage: 30 MILLIGRAM (30 MG)
     Route: 065
  3. MAGNESIUM [Suspect]
     Active Substance: MAGNESIUM
     Indication: Muscle spasms
     Dosage: UNK
     Route: 065
  4. BISOPROLOL FUMARATE [Suspect]
     Active Substance: BISOPROLOL FUMARATE
     Indication: Arrhythmia
     Dosage: UNK
     Route: 065
  5. MAGNESIUM PHOSPHATE, TRIBASIC, PENTAHYDRATE [Concomitant]
     Active Substance: MAGNESIUM PHOSPHATE, TRIBASIC, PENTAHYDRATE
     Indication: Product used for unknown indication
     Dosage: 10 PIECES, QD, SCHUESSLER SALTS NO. 7 D6
     Route: 065
  6. DIETARY SUPPLEMENT [Concomitant]
     Active Substance: DIETARY SUPPLEMENT
     Indication: Product used for unknown indication
     Dosage: 4 PIECES, QD
     Route: 065

REACTIONS (4)
  - Palpitations [Unknown]
  - Dizziness [Unknown]
  - Arrhythmia [Unknown]
  - Condition aggravated [Unknown]
